FAERS Safety Report 9413691 (Version 1)
Quarter: 2013Q3

REPORT INFORMATION
  Report Type: Spontaneous
  Country: US (occurrence: None)
  Receive Date: 20130708
  Receipt Date: 20130708
  Transmission Date: 20140515
  Serious: Yes (Life-Threatening, Hospitalization, Other)
  Sender: FDA-Public Use
  Company Number: 08-AUR-04802

PATIENT
  Age: 29 Year
  Sex: Male

DRUGS (7)
  1. METOPROLOL (METOPROLOL) [Suspect]
     Indication: HYPERTENSION
     Route: 042
  2. EPINEPHRINE [Suspect]
     Indication: SURGERY
     Route: 061
  3. SEVOFLURANE (SEVOFLURANE) [Concomitant]
  4. LIDOCAINE/EPINEPHERINE [Concomitant]
  5. PROPOFOL (PROPOFOL) [Concomitant]
  6. FENTANYL (FENTANYL) [Concomitant]
  7. LIDOCAINE (LIDOCAINE) [Concomitant]

REACTIONS (6)
  - Cardiogenic shock [None]
  - Hypertension [None]
  - Sinus tachycardia [None]
  - Agitation [None]
  - Pulseless electrical activity [None]
  - Pulmonary oedema [None]
